FAERS Safety Report 24409546 (Version 1)
Quarter: 2024Q4

REPORT INFORMATION
  Report Type: Spontaneous
  Country: CN (occurrence: CN)
  Receive Date: 20241008
  Receipt Date: 20241008
  Transmission Date: 20250115
  Serious: Yes (Hospitalization)
  Sender: NOVAST
  Company Number: CN-NOVAST LABORATORIES INC.-2024NOV000307

PATIENT

DRUGS (1)
  1. METOPROLOL SUCCINATE [Suspect]
     Active Substance: METOPROLOL SUCCINATE
     Indication: Intentional overdose
     Dosage: 208 TABLETS, PER DAY
     Route: 048
     Dates: start: 20240911, end: 20240911

REACTIONS (13)
  - Sluggishness [Unknown]
  - Coma [Recovering/Resolving]
  - Dizziness [Recovering/Resolving]
  - Diarrhoea [Unknown]
  - Headache [Unknown]
  - Hyperhidrosis [Unknown]
  - Memory impairment [Recovering/Resolving]
  - Nausea [Unknown]
  - Palpitations [Unknown]
  - Vision blurred [Unknown]
  - Vomiting [Unknown]
  - Off label use [Unknown]
  - Product use in unapproved indication [Unknown]

NARRATIVE: CASE EVENT DATE: 20240911
